FAERS Safety Report 8880828 (Version 2)
Quarter: 2012Q4

REPORT INFORMATION
  Report Type: 
  Country: US (occurrence: US)
  Receive Date: 20121101
  Receipt Date: 20121107
  Transmission Date: 20130627
  Serious: Yes (Death, Hospitalization)
  Sender: FDA-Public Use
  Company Number: US-BAXTER-2012BAX021049

PATIENT
  Age: 78 Year
  Sex: Female

DRUGS (1)
  1. DIANEAL LOW CALCIUM [Suspect]
     Indication: PERITONEAL DIALYSIS
     Route: 033
     Dates: end: 20121023

REACTIONS (3)
  - Death [Fatal]
  - Atrial fibrillation [Recovered/Resolved]
  - Gastrointestinal haemorrhage [Unknown]
